FAERS Safety Report 21439993 (Version 2)
Quarter: 2022Q4

REPORT INFORMATION
  Report Type: Spontaneous
  Country: IN (occurrence: IN)
  Receive Date: 20221011
  Receipt Date: 20221011
  Transmission Date: 20230113
  Serious: Yes (Death, Life-Threatening, Hospitalization, Other)
  Sender: FDA-Public Use
  Company Number: IN-PFIZER INC-202201194017

PATIENT
  Age: 46 Year
  Sex: Female

DRUGS (12)
  1. METHYLPREDNISOLONE [Suspect]
     Active Substance: METHYLPREDNISOLONE
     Indication: COVID-19
     Dosage: 40 MG, 2X/DAY
  2. METHYLPREDNISOLONE [Suspect]
     Active Substance: METHYLPREDNISOLONE
     Dosage: 80 MG, 2X/DAY
  3. REMDESIVIR [Concomitant]
     Active Substance: REMDESIVIR
     Indication: COVID-19
     Dosage: 200 MG IN 100 ML NORMAL SALINE ON DAY 1
  4. REMDESIVIR [Concomitant]
     Active Substance: REMDESIVIR
     Dosage: EXTENDED TO A TOTAL OF 10 DAYS
  5. REMDESIVIR [Concomitant]
     Active Substance: REMDESIVIR
     Indication: COVID-19
     Dosage: 100 MG FOR THE NEXT 4 DAYS
     Route: 048
  6. LENOX [LOXOPROFEN SODIUM] [Concomitant]
     Indication: COVID-19
     Dosage: 0.4 ML, 2X/DAY
     Route: 058
  7. INSULIN HUMAN [Concomitant]
     Active Substance: INSULIN HUMAN
     Indication: COVID-19
     Dosage: ACCORDING TO SLIDING SCALE
  8. LUPENOX [Concomitant]
     Indication: COVID-19
     Dosage: 0.6 ML, 2X/DAY
     Route: 058
  9. LUPENOX [Concomitant]
     Dosage: 0.4 ML, 2X/DAY
  10. OXYGEN [Concomitant]
     Active Substance: OXYGEN
     Indication: COVID-19
     Dosage: 6 L/MIN
  11. OXYGEN [Concomitant]
     Active Substance: OXYGEN
     Dosage: 15 L/MIN
  12. OXYGEN [Concomitant]
     Active Substance: OXYGEN
     Dosage: 12 L/MIN

REACTIONS (4)
  - Pneumonia necrotising [Fatal]
  - Pulmonary mucormycosis [Fatal]
  - Pulmonary cavitation [Not Recovered/Not Resolved]
  - Off label use [Unknown]
